FAERS Safety Report 23576425 (Version 1)
Quarter: 2024Q1

REPORT INFORMATION
  Report Type: Spontaneous
  Country: US (occurrence: None)
  Receive Date: 20240228
  Receipt Date: 20240228
  Transmission Date: 20240410
  Serious: Yes (Death, Hospitalization)
  Sender: FDA-Public Use
  Company Number: None

PATIENT
  Age: 7 Year
  Sex: Female
  Weight: 18.9 kg

DRUGS (1)
  1. VINCRISTINE SULFATE [Suspect]
     Active Substance: VINCRISTINE SULFATE
     Dates: end: 20240210

REACTIONS (17)
  - Staphylococcal sepsis [None]
  - Septic shock [None]
  - B-cell type acute leukaemia [None]
  - Immunosuppression [None]
  - Pneumonia [None]
  - Pleural effusion [None]
  - Respiratory failure [None]
  - Supraventricular tachycardia [None]
  - Yersinia infection [None]
  - Fungal infection [None]
  - Pancytopenia [None]
  - Disseminated intravascular coagulation [None]
  - Encephalopathy [None]
  - Brain injury [None]
  - General physical health deterioration [None]
  - Oxygen saturation decreased [None]
  - Pulmonary air leakage [None]

NARRATIVE: CASE EVENT DATE: 20240207
